FAERS Safety Report 10452226 (Version 3)
Quarter: 2015Q1

REPORT INFORMATION
  Report Type: Report from Study
  Country: CN (occurrence: CN)
  Receive Date: 20140915
  Receipt Date: 20150113
  Transmission Date: 20150720
  Serious: Yes (Death)
  Sender: FDA-Public Use
  Company Number: PHHY2014CN118103

PATIENT
  Age: 29 Year
  Sex: Female

DRUGS (2)
  1. EXJADE [Suspect]
     Active Substance: DEFERASIROX
     Indication: MYELODYSPLASTIC SYNDROME
     Dosage: 1000 MG, DAILY (QD)
     Route: 048
     Dates: start: 20140219
  2. EXJADE [Suspect]
     Active Substance: DEFERASIROX
     Indication: BONE FORMATION INCREASED

REACTIONS (1)
  - Death [Fatal]

NARRATIVE: CASE EVENT DATE: 20140912
